FAERS Safety Report 19567867 (Version 1)
Quarter: 2021Q3

REPORT INFORMATION
  Report Type: Spontaneous
  Country: CZ (occurrence: CZ)
  Receive Date: 20210715
  Receipt Date: 20210715
  Transmission Date: 20211014
  Serious: Yes (Other)
  Sender: FDA-Public Use
  Company Number: CZ-PFIZER INC-2021849251

PATIENT
  Sex: Male

DRUGS (3)
  1. METHYLPREDNISOLONE SODIUM SUCCINATE. [Suspect]
     Active Substance: METHYLPREDNISOLONE SODIUM SUCCINATE
     Dosage: 10 MG/KG/DAY, ALWAYS FOR THE DURATION OF THREE DAYS
     Route: 040
     Dates: start: 201309
  2. METHYLPREDNISOLONE SODIUM SUCCINATE. [Suspect]
     Active Substance: METHYLPREDNISOLONE SODIUM SUCCINATE
     Dosage: UNK, MONTHLY
     Route: 040
     Dates: end: 201406
  3. METHYLPREDNISOLONE. [Suspect]
     Active Substance: METHYLPREDNISOLONE
     Dosage: 0.2 MG/KG, ALTERNATE DAY
     Route: 048
     Dates: start: 201406, end: 2016

REACTIONS (4)
  - Osteoporosis [Unknown]
  - Growth retardation [Unknown]
  - Cushingoid [Unknown]
  - Glucocorticoid deficiency [Unknown]

NARRATIVE: CASE EVENT DATE: 2015
